FAERS Safety Report 11024453 (Version 1)
Quarter: 2015Q2

REPORT INFORMATION
  Report Type: Spontaneous
  Country: BR (occurrence: BR)
  Receive Date: 20150414
  Receipt Date: 20150414
  Transmission Date: 20150821
  Serious: Yes (Hospitalization)
  Sender: FDA-Public Use
  Company Number: BR-BRISTOL-MYERS SQUIBB COMPANY-BMS-2015-022326

PATIENT
  Sex: Female
  Weight: 83 kg

DRUGS (6)
  1. PACO [Suspect]
     Active Substance: ACETAMINOPHEN\CODEINE PHOSPHATE
     Indication: PRODUCT USED FOR UNKNOWN INDICATION
     Dosage: UNK
     Route: 065
  2. CLORANA [Concomitant]
     Active Substance: HYDROCHLOROTHIAZIDE
     Indication: HYPERTENSION
     Dosage: 25 MG, QD
     Route: 065
  3. NIMESULIDE [Suspect]
     Active Substance: NIMESULIDE
     Indication: PAIN
     Dosage: 400 MG, UNK
     Route: 065
  4. LOSARTAN [Concomitant]
     Active Substance: LOSARTAN
     Indication: HYPERTENSION
     Dosage: 50 MG, QD
     Route: 065
  5. GLIFAGE XR [Suspect]
     Active Substance: METFORMIN HYDROCHLORIDE
     Indication: TYPE 2 DIABETES MELLITUS
     Dosage: 500 MG, TID
     Route: 048
  6. DIAZEPAN [Concomitant]
     Indication: INSOMNIA
     Dosage: UNK, QD
     Route: 065

REACTIONS (7)
  - Tearfulness [Unknown]
  - Feeling abnormal [Unknown]
  - Blood glucose increased [Unknown]
  - Constipation [Recovered/Resolved]
  - Mental disorder [Unknown]
  - Pruritus generalised [Unknown]
  - Generalised erythema [Recovered/Resolved]
